FAERS Safety Report 20216461 (Version 1)
Quarter: 2021Q4

REPORT INFORMATION
  Report Type: Spontaneous
  Country: US (occurrence: None)
  Receive Date: 20211221
  Receipt Date: 20211221
  Transmission Date: 20220303
  Serious: Yes (Death)
  Sender: FDA-Public Use
  Company Number: None

PATIENT
  Age: 61 Year
  Sex: Female

DRUGS (9)
  1. PROCHLORPERAZINE [Suspect]
     Active Substance: PROCHLORPERAZINE
     Indication: Hepatocellular carcinoma
     Dosage: FREQUENCY : AS NEEDED;?
     Route: 048
  2. CINACALCET [Concomitant]
     Active Substance: CINACALCET
  3. DOXAZOSIN [Concomitant]
     Active Substance: DOXAZOSIN MESYLATE
  4. HYDRALAZINE [Concomitant]
     Active Substance: HYDRALAZINE HYDROCHLORIDE
  5. METHADONE [Concomitant]
     Active Substance: METHADONE HYDROCHLORIDE
  6. METOPROLOL [Concomitant]
     Active Substance: METOPROLOL
  7. NIFEDIPINE [Concomitant]
     Active Substance: NIFEDIPINE
  8. ASCORBIC ACID\BIOTIN\CALCIUM PANTOTHENATE\CYANOCOBALAMIN\FOLIC ACID\NI [Concomitant]
     Active Substance: ASCORBIC ACID\BIOTIN\CALCIUM PANTOTHENATE\CYANOCOBALAMIN\FOLIC ACID\NIACINAMIDE\PYRIDOXINE HYDROCHLO
  9. SEVELAMER [Concomitant]
     Active Substance: SEVELAMER

REACTIONS (1)
  - Renal failure [None]

NARRATIVE: CASE EVENT DATE: 20211209
